FAERS Safety Report 24131200 (Version 1)
Quarter: 2024Q3

REPORT INFORMATION
  Report Type: Report from Study
  Country: ZA (occurrence: ZA)
  Receive Date: 20240724
  Receipt Date: 20240724
  Transmission Date: 20241016
  Serious: Yes (Other)
  Sender: ROCHE
  Company Number: ZA-ROCHE-10000026795

PATIENT
  Sex: Female

DRUGS (1)
  1. OCREVUS [Suspect]
     Active Substance: OCRELIZUMAB
     Indication: Multiple sclerosis
     Dosage: THEREAFTER 600MG EVERY 6 MONTHS
     Route: 042
     Dates: start: 20211014

REACTIONS (4)
  - Expanded disability status scale score increased [Unknown]
  - Demyelination [Unknown]
  - Brain neoplasm [Unknown]
  - Magnetic resonance imaging abnormal [Unknown]
